FAERS Safety Report 7081431-0 (Version None)
Quarter: 2010Q4

REPORT INFORMATION
  Report Type: 
  Country: None (occurrence: None)
  Receive Date: 20101102
  Receipt Date: 20101102
  Transmission Date: 20110411
  Serious: Yes (Other)
  Sender: FDA-Public Use
  Company Number: None

PATIENT
  Sex: Male
  Weight: 70.3075 kg

DRUGS (11)
  1. SUNITINIB 37.5 MG [Suspect]
     Indication: BRAIN NEOPLASM
     Dosage: 37.5 MG 1X DAY PO
     Route: 048
     Dates: start: 20100921, end: 20101018
  2. INSULIN [Concomitant]
  3. KEPPRA [Concomitant]
  4. VICODIN [Concomitant]
  5. ADVAIR DISKUS 100/50 [Concomitant]
  6. DIGOXIN [Concomitant]
  7. SPIRIVA WITH HANDIHALER [Concomitant]
  8. METOPROLOL SUCCINATE [Concomitant]
  9. LISINOPRIL [Concomitant]
  10. LANTUS [Suspect]
  11. MAGNESIUM SALT [Concomitant]

REACTIONS (3)
  - COUGH [None]
  - LYMPHOPENIA [None]
  - TROPONIN INCREASED [None]
